FAERS Safety Report 15522772 (Version 1)
Quarter: 2018Q4

REPORT INFORMATION
  Report Type: Spontaneous
  Country: US (occurrence: US)
  Receive Date: 20181017
  Receipt Date: 20181017
  Transmission Date: 20190205
  Serious: No
  Sender: FDA-Public Use
  Company Number: US-NOVOPROD-623446

PATIENT
  Age: 62 Year
  Sex: Female

DRUGS (3)
  1. TRESIBA FLEXTOUCH U200 [Suspect]
     Active Substance: INSULIN DEGLUDEC
     Dosage: 8 U, BID
     Route: 058
     Dates: start: 201809
  2. METFORMIN [Concomitant]
     Active Substance: METFORMIN HYDROCHLORIDE
     Indication: LATENT AUTOIMMUNE DIABETES IN ADULTS
     Dosage: UNK
     Route: 048
  3. TRESIBA FLEXTOUCH U200 [Suspect]
     Active Substance: INSULIN DEGLUDEC
     Indication: LATENT AUTOIMMUNE DIABETES IN ADULTS
     Dosage: 10 U, BID
     Route: 058
     Dates: start: 20180907, end: 201809

REACTIONS (4)
  - Blood glucose decreased [Recovered/Resolved]
  - Nausea [Not Recovered/Not Resolved]
  - Blood glucose increased [Recovered/Resolved]
  - Off label use [Unknown]

NARRATIVE: CASE EVENT DATE: 201809
